FAERS Safety Report 9720824 (Version 1)
Quarter: 2013Q4

REPORT INFORMATION
  Report Type: Spontaneous
  Country: MX (occurrence: MX)
  Receive Date: 20131129
  Receipt Date: 20131129
  Transmission Date: 20140711
  Serious: Yes (Other)
  Sender: FDA-Public Use
  Company Number: MX-ROCHE-1310436

PATIENT
  Age: 53 Year
  Sex: 0

DRUGS (6)
  1. AVASTIN [Suspect]
     Indication: BREAST CANCER METASTATIC
     Route: 065
     Dates: start: 20101215
  2. ADRIAMYCIN [Suspect]
     Indication: BREAST CANCER METASTATIC
     Route: 065
     Dates: start: 20100714, end: 20131110
  3. CYCLOPHOSPHAMIDE [Suspect]
     Indication: BREAST CANCER METASTATIC
     Route: 065
     Dates: start: 20100714, end: 20101110
  4. DOCETAXEL [Suspect]
     Indication: BREAST CANCER METASTATIC
     Route: 065
     Dates: start: 20100714, end: 20101110
  5. DOCETAXEL [Suspect]
     Route: 065
     Dates: start: 20101215
  6. CARBOPLATINO [Concomitant]
     Indication: BREAST CANCER METASTATIC
     Route: 065
     Dates: start: 20101215

REACTIONS (2)
  - Toxicity to various agents [Unknown]
  - Disease progression [Unknown]
